FAERS Safety Report 12426671 (Version 1)
Quarter: 2016Q2

REPORT INFORMATION
  Report Type: Spontaneous
  Country: US (occurrence: US)
  Receive Date: 20160601
  Receipt Date: 20160601
  Transmission Date: 20160815
  Serious: No
  Sender: FDA-Public Use
  Company Number: US-SEPTODONT-201502952

PATIENT
  Sex: Male

DRUGS (1)
  1. ARTICAINE 4% WITH EPINEPHRINE 1:200,000 [Suspect]
     Active Substance: ARTICAINE\EPINEPHRINE
     Indication: LOCAL ANAESTHESIA
     Dosage: NO DOSE INFORMATION PROVIDED.
     Route: 004

REACTIONS (1)
  - Drug ineffective [Unknown]
